FAERS Safety Report 5730333-8 (Version None)
Quarter: 2008Q2

REPORT INFORMATION
  Report Type: 
  Country: None (occurrence: None)
  Receive Date: 20080430
  Receipt Date: 20080118
  Transmission Date: 20081010
  Serious: No
  Sender: FDA-Public Use
  Company Number: 2008PV033985

PATIENT
  Age: 55 Year
  Sex: Male
  Weight: 65.7716 kg

DRUGS (6)
  1. SYMLIN [Suspect]
     Indication: TYPE 1 DIABETES MELLITUS
     Dosage: 120;TID;SC,60 MCG;SC,45 MCG;SC, 30 MCG;SC, 15 MCG; SC
     Route: 058
     Dates: start: 20070101, end: 20070101
  2. SYMLIN [Suspect]
     Indication: TYPE 1 DIABETES MELLITUS
     Dosage: 120;TID;SC,60 MCG;SC,45 MCG;SC, 30 MCG;SC, 15 MCG; SC
     Route: 058
     Dates: start: 20070101, end: 20070101
  3. SYMLIN [Suspect]
     Indication: TYPE 1 DIABETES MELLITUS
     Dosage: 120;TID;SC,60 MCG;SC,45 MCG;SC, 30 MCG;SC, 15 MCG; SC
     Route: 058
     Dates: start: 20070101, end: 20070101
  4. SYMLIN [Suspect]
     Indication: TYPE 1 DIABETES MELLITUS
     Dosage: 120;TID;SC,60 MCG;SC,45 MCG;SC, 30 MCG;SC, 15 MCG; SC
     Route: 058
     Dates: start: 20071001, end: 20070101
  5. SYMLIN [Suspect]
     Indication: TYPE 1 DIABETES MELLITUS
     Dosage: 120;TID;SC,60 MCG;SC,45 MCG;SC, 30 MCG;SC, 15 MCG; SC
     Route: 058
     Dates: start: 20070101
  6. APIDRA [Concomitant]

REACTIONS (3)
  - BLOOD GLUCOSE DECREASED [None]
  - BLOOD GLUCOSE FLUCTUATION [None]
  - STOMACH DISCOMFORT [None]
